FAERS Safety Report 7587992-7 (Version None)
Quarter: 2011Q3

REPORT INFORMATION
  Report Type: 
  Country: None (occurrence: None)
  Receive Date: 20110705
  Receipt Date: 20110628
  Transmission Date: 20111222
  Serious: No
  Sender: FDA-Public Use
  Company Number: US-PFIZER INC-2011126812

PATIENT
  Sex: Female
  Weight: 50.8 kg

DRUGS (1)
  1. ESTRING [Suspect]
     Indication: MENOPAUSE
     Dosage: 2 MG, EVERY 3 MONTHS
     Route: 067
     Dates: start: 20070101

REACTIONS (1)
  - DRUG INEFFECTIVE [None]
